FAERS Safety Report 12194494 (Version 3)
Quarter: 2021Q3

REPORT INFORMATION
  Report Type: Spontaneous
  Country: FR (occurrence: FR)
  Receive Date: 20160321
  Receipt Date: 20210731
  Transmission Date: 20211014
  Serious: Yes (Hospitalization, Other)
  Sender: FDA-Public Use
  Company Number: PHHY2016FR035741

PATIENT
  Age: 75 Year
  Sex: Female

DRUGS (2)
  1. ZOLEDRONATE [Suspect]
     Active Substance: ZOLEDRONIC ACID
     Indication: OSTEOPOROSIS POSTMENOPAUSAL
     Dosage: UNK
     Route: 042
  2. ZOLEDRONATE [Suspect]
     Active Substance: ZOLEDRONIC ACID
     Indication: SPINAL FRACTURE

REACTIONS (12)
  - Paraesthesia [Unknown]
  - Influenza like illness [Recovered/Resolved]
  - Headache [Unknown]
  - Eyelid ptosis [Unknown]
  - Cranial nerve disorder [Recovered/Resolved]
  - Strabismus [Unknown]
  - Hypoaesthesia [Unknown]
  - Mydriasis [Unknown]
  - Hyperthermia [Unknown]
  - Myalgia [Unknown]
  - Vomiting [Unknown]
  - Photophobia [Unknown]
